FAERS Safety Report 7003689-6 (Version None)
Quarter: 2010Q3

REPORT INFORMATION
  Report Type: 
  Country: None (occurrence: None)
  Receive Date: 20100920
  Receipt Date: 20091022
  Transmission Date: 20110219
  Serious: No
  Sender: FDA-Public Use
  Company Number: US-WYE-H11821809

PATIENT
  Sex: Male
  Weight: 86.26 kg

DRUGS (4)
  1. PROTONIX [Suspect]
     Route: 048
     Dates: start: 20090801
  2. WARFARIN SODIUM [Concomitant]
  3. PLAVIX [Concomitant]
  4. DIGOXIN [Concomitant]

REACTIONS (1)
  - BLOOD IRON DECREASED [None]
